FAERS Safety Report 5338003-5 (Version None)
Quarter: 2007Q2

REPORT INFORMATION
  Report Type: 
  Country: None (occurrence: None)
  Receive Date: 20070530
  Receipt Date: 20070517
  Transmission Date: 20071010
  Serious: Yes (Hospitalization, Other)
  Sender: FDA-Public Use
  Company Number: PHEH2007US05461

PATIENT
  Age: 46 Year
  Sex: Female

DRUGS (6)
  1. ZELNORM [Suspect]
     Indication: IRRITABLE BOWEL SYNDROME
     Dosage: 6 MG, BID
     Route: 048
     Dates: start: 20020101, end: 20070409
  2. EFFEXOR [Concomitant]
     Indication: DEPRESSION
     Dosage: 75 MG, QD
     Dates: start: 20060101
  3. ASCORBIC ACID [Concomitant]
     Indication: PROPHYLAXIS
     Dosage: UNK, QD
  4. L-LYSINE [Concomitant]
     Indication: PROPHYLAXIS
     Dosage: QD PRN
     Dates: start: 20060101
  5. DICYCLOMINE [Concomitant]
     Indication: IRRITABLE BOWEL SYNDROME
     Dosage: UNK, BID
     Route: 048
     Dates: start: 19800101
  6. ASPIRIN [Concomitant]
     Indication: ARTHRITIS
     Dosage: 325 MG, PRN
     Route: 048
     Dates: start: 19800101

REACTIONS (6)
  - CARDIAC DISORDER [None]
  - CHEST PAIN [None]
  - COSTOVERTEBRAL ANGLE TENDERNESS [None]
  - INTERVERTEBRAL DISC OPERATION [None]
  - MITRAL VALVE PROLAPSE [None]
  - SYNCOPE VASOVAGAL [None]
